FAERS Safety Report 8224504-9 (Version None)
Quarter: 2012Q1

REPORT INFORMATION
  Report Type: 
  Country: None (occurrence: None)
  Receive Date: 20120321
  Receipt Date: 20120305
  Transmission Date: 20120608
  Serious: Yes (Hospitalization)
  Sender: FDA-Public Use
  Company Number: US-UCBSA-053620

PATIENT
  Age: 31 Year
  Sex: Male
  Weight: 70.45 kg

DRUGS (3)
  1. LACOSAMIDE [Suspect]
     Indication: EPILEPSY
     Route: 048
     Dates: start: 20120112
  2. KEPPRA [Concomitant]
     Route: 048
  3. DILANTIN [Concomitant]
     Dosage: BED TIME 3 CAPSULE
     Route: 048

REACTIONS (1)
  - GRAND MAL CONVULSION [None]
